FAERS Safety Report 14977037 (Version 1)
Quarter: 2018Q2

REPORT INFORMATION
  Report Type: Spontaneous
  Country: DE (occurrence: DE)
  Receive Date: 20180606
  Receipt Date: 20180606
  Transmission Date: 20180711
  Serious: Yes (Hospitalization)
  Sender: FDA-Public Use
  Company Number: DE-TEVA-2018-DE-902400

PATIENT
  Age: 73 Year
  Sex: Female

DRUGS (5)
  1. METAMIZOLE [Suspect]
     Active Substance: METAMIZOLE
  2. PANTOPRAZOL [Concomitant]
     Active Substance: PANTOPRAZOLE SODIUM
     Dosage: 40 MILLIGRAM DAILY;
  3. TORASEMIDE [Suspect]
     Active Substance: TORSEMIDE
     Dosage: NK
     Route: 065
  4. IBUPROFEN. [Suspect]
     Active Substance: IBUPROFEN
  5. CANDESARTAN. [Suspect]
     Active Substance: CANDESARTAN
     Dosage: NK
     Route: 065

REACTIONS (3)
  - Vomiting [Unknown]
  - Diarrhoea [Unknown]
  - Nausea [Unknown]
